FAERS Safety Report 19086794 (Version 1)
Quarter: 2021Q2

REPORT INFORMATION
  Report Type: Spontaneous
  Country: US (occurrence: US)
  Receive Date: 20210401
  Receipt Date: 20210401
  Transmission Date: 20210717
  Serious: No
  Sender: FDA-Public Use
  Company Number: None

PATIENT
  Sex: Male

DRUGS (1)
  1. OTEZLA [Suspect]
     Active Substance: APREMILAST
     Indication: PSORIATIC ARTHROPATHY
     Route: 048
     Dates: start: 20200805

REACTIONS (5)
  - Pruritus [None]
  - Diarrhoea [None]
  - Inappropriate schedule of product administration [None]
  - Treatment noncompliance [None]
  - Skin burning sensation [None]
